FAERS Safety Report 9734732 (Version 4)
Quarter: 2014Q1

REPORT INFORMATION
  Report Type: Spontaneous
  Country: KR (occurrence: KR)
  Receive Date: 20131206
  Receipt Date: 20140109
  Transmission Date: 20141002
  Serious: Yes (Other)
  Sender: FDA-Public Use
  Company Number: KR-ROCHE-1302127

PATIENT
  Age: 81 Year
  Sex: Female

DRUGS (5)
  1. RANIBIZUMAB [Suspect]
     Indication: AGE-RELATED MACULAR DEGENERATION
     Route: 050
     Dates: start: 20110826
  2. RANIBIZUMAB [Suspect]
     Indication: APHAKIA
  3. ALCAINE [Concomitant]
  4. POVIDONE IODINE [Concomitant]
  5. OCUFLOX [Concomitant]

REACTIONS (2)
  - Retinal pigment epithelial tear [Unknown]
  - Retinal oedema [Unknown]
